FAERS Safety Report 21649397 (Version 2)
Quarter: 2022Q4

REPORT INFORMATION
  Report Type: Report from Study
  Country: HU (occurrence: HU)
  Receive Date: 20221128
  Receipt Date: 20221227
  Transmission Date: 20230112
  Serious: Yes (Other)
  Sender: FDA-Public Use
  Company Number: HU-002147023-NVSC2022HU263090

PATIENT
  Sex: Male

DRUGS (2)
  1. ASCIMINIB [Suspect]
     Active Substance: ASCIMINIB
     Indication: Chronic myeloid leukaemia
     Dosage: 40 MG (STRENGTH: 40 MG)
     Route: 065
     Dates: start: 20210721
  2. ASCIMINIB [Suspect]
     Active Substance: ASCIMINIB
     Dosage: 80 MG (2X40MG)
     Route: 065

REACTIONS (1)
  - Myocardial infarction [Unknown]
